FAERS Safety Report 4472118-9 (Version None)
Quarter: 2004Q4

REPORT INFORMATION
  Report Type: 
  Country: None (occurrence: None)
  Receive Date: 20041008
  Receipt Date: 20040927
  Transmission Date: 20050328
  Serious: Yes (Other)
  Sender: FDA-Public Use
  Company Number: 2004070656

PATIENT
  Sex: Female

DRUGS (4)
  1. LIPITOR [Suspect]
     Indication: ILL-DEFINED DISORDER
  2. ACCUPRIL [Suspect]
     Indication: ILL-DEFINED DISORDER
  3. VICODIN [Suspect]
     Indication: ILL-DEFINED DISORDER
  4. AMITRIPTYLINE HCL [Suspect]
     Indication: ILL-DEFINED DISORDER

REACTIONS (1)
  - ANOSMIA [None]
